FAERS Safety Report 17413821 (Version 2)
Quarter: 2020Q2

REPORT INFORMATION
  Report Type: Spontaneous
  Country: KR (occurrence: KR)
  Receive Date: 20200213
  Receipt Date: 20200618
  Transmission Date: 20200713
  Serious: Yes (Hospitalization)
  Sender: FDA-Public Use
  Company Number: KR-ASTRAZENECA-2019SF31785

PATIENT
  Age: 76 Year
  Sex: Female

DRUGS (9)
  1. IMIPRAMINE [Concomitant]
     Active Substance: IMIPRAMINE
  2. DAPAGLIFLOZIN. [Suspect]
     Active Substance: DAPAGLIFLOZIN
     Indication: TYPE 2 DIABETES MELLITUS
     Route: 048
  3. DAPAGLIFLOZIN. [Suspect]
     Active Substance: DAPAGLIFLOZIN
     Indication: TYPE 2 DIABETES MELLITUS
     Route: 048
  4. TOLTERODINE [Concomitant]
     Active Substance: TOLTERODINE
  5. INSULIN [Concomitant]
     Active Substance: INSULIN NOS
     Indication: DIABETES MELLITUS
  6. EZETIMIBE/ROSUVASTATIN CALCIUM [Concomitant]
     Dosage: 10MG/ 5.2 MG
  7. METFORMIN [Concomitant]
     Active Substance: METFORMIN HYDROCHLORIDE
     Indication: TYPE 2 DIABETES MELLITUS
     Route: 048
  8. CLOPIDOGREL [Concomitant]
     Active Substance: CLOPIDOGREL BISULFATE
  9. NICORANDIL [Concomitant]
     Active Substance: NICORANDIL

REACTIONS (4)
  - Hypernatraemia [Recovered/Resolved]
  - Euglycaemic diabetic ketoacidosis [Recovering/Resolving]
  - Hypovolaemia [Recovered/Resolved]
  - Hypokalaemia [Recovered/Resolved]
